FAERS Safety Report 9417298 (Version 1)
Quarter: 2013Q3

REPORT INFORMATION
  Report Type: Spontaneous
  Country: US (occurrence: US)
  Receive Date: 20130724
  Receipt Date: 20130724
  Transmission Date: 20140515
  Serious: No
  Sender: FDA-Public Use
  Company Number: US-BRISTOL-MYERS SQUIBB COMPANY-18922146

PATIENT
  Age: 85 Year
  Sex: Female
  Weight: 53.51 kg

DRUGS (7)
  1. ELIQUIS [Suspect]
     Indication: ATRIAL FIBRILLATION
     Dates: start: 20130508
  2. MULTAQ [Concomitant]
  3. ISOSORBIDE MONONITRATE [Concomitant]
  4. SYNTHROID [Concomitant]
  5. LEVOXYL [Concomitant]
  6. PREMARIN [Concomitant]
  7. PROGESTERONE [Concomitant]

REACTIONS (3)
  - Back pain [Unknown]
  - Weight increased [Unknown]
  - Body height decreased [Unknown]
